FAERS Safety Report 14232440 (Version 3)
Quarter: 2018Q4

REPORT INFORMATION
  Report Type: Spontaneous
  Country: JP (occurrence: JP)
  Receive Date: 20171128
  Receipt Date: 20181015
  Transmission Date: 20190204
  Serious: Yes (Life-Threatening, Other)
  Sender: FDA-Public Use
  Company Number: JP-PFIZER INC-2017508286

PATIENT
  Age: 45 Year
  Sex: Female

DRUGS (10)
  1. PACLITAXEL. [Suspect]
     Active Substance: PACLITAXEL
     Indication: TERATOMA
     Dosage: UNK UNK, CYCLIC (TWO CYCLES)
  2. IFOSFAMIDE. [Suspect]
     Active Substance: IFOSFAMIDE
     Indication: TERATOMA
     Dosage: UNK UNK, CYCLIC (TWO CYCLES)
  3. BLEOMYCIN [Suspect]
     Active Substance: BLEOMYCIN SULFATE
     Indication: TERATOMA
     Dosage: UNK UNK, CYCLIC (OVER FOUR CYCLES)
  4. ETOPOSIDE. [Suspect]
     Active Substance: ETOPOSIDE
     Indication: TERATOMA
     Dosage: UNK UNK, CYCLIC (OVER FOUR CYCLES)
  5. CISPLATIN. [Suspect]
     Active Substance: CISPLATIN
     Indication: TERATOMA
     Dosage: UNK UNK, CYCLIC (OVER FOUR CYCLES)
  6. ETOPOSIDE. [Suspect]
     Active Substance: ETOPOSIDE
     Dosage: UNK UNK, CYCLIC (SIX CYCLES)
  7. CARBOPLATIN. [Suspect]
     Active Substance: CARBOPLATIN
     Indication: TERATOMA
     Dosage: UNK UNK, CYCLIC (OVER FOUR CYCLES)
  8. CARBOPLATIN. [Suspect]
     Active Substance: CARBOPLATIN
     Dosage: UNK UNK, CYCLIC (SIX CYCLES)
  9. CISPLATIN. [Suspect]
     Active Substance: CISPLATIN
     Dosage: UNK UNK, CYCLIC (TWO CYCLES)
  10. PACLITAXEL. [Suspect]
     Active Substance: PACLITAXEL
     Dosage: UNK UNK, CYCLIC (OVER FOUR CYCLES)

REACTIONS (1)
  - Drug resistance [Recovered/Resolved]
